FAERS Safety Report 8313964 (Version 4)
Quarter: 2014Q1

REPORT INFORMATION
  Report Type: Spontaneous
  Country: US (occurrence: US)
  Receive Date: 20111228
  Receipt Date: 20140211
  Transmission Date: 20141002
  Serious: No
  Sender: FDA-Public Use
  Company Number: US-PFIZER INC-2011039532

PATIENT
  Age: 59 Year
  Sex: Female
  Weight: 61.22 kg

DRUGS (5)
  1. ARTHROTEC [Suspect]
     Indication: BACK PAIN
     Dosage: 50 MG/ 0.2 MG, 3X/DAY
     Route: 048
     Dates: start: 20110325
  2. ARTHROTEC [Suspect]
     Indication: ARTHRALGIA
     Dosage: UNK, 3X/DAY
     Route: 048
  3. ARTHROTEC [Suspect]
     Indication: PAIN
     Dosage: UNK
     Route: 048
     Dates: end: 20110415
  4. ARTHROTEC [Suspect]
     Dosage: UNK
  5. MULTIVITAMINS [Concomitant]
     Indication: SUPPLEMENTATION THERAPY
     Dosage: UNK

REACTIONS (6)
  - Gastric disorder [Recovered/Resolved]
  - Drug ineffective [Unknown]
  - Constipation [Recovered/Resolved]
  - Abdominal pain upper [Recovered/Resolved]
  - Dyspepsia [Recovered/Resolved]
  - Dyspepsia [Recovered/Resolved]
